FAERS Safety Report 24864008 (Version 2)
Quarter: 2025Q1

REPORT INFORMATION
  Report Type: Spontaneous
  Country: AT (occurrence: AT)
  Receive Date: 20250120
  Receipt Date: 20250203
  Transmission Date: 20250408
  Serious: Yes (Other)
  Sender: PURDUE
  Company Number: AT-PURDUE-USA-2025-0314721

PATIENT
  Sex: Female

DRUGS (1)
  1. MORPHINE SULFATE [Suspect]
     Active Substance: MORPHINE SULFATE
     Indication: Product used for unknown indication
     Route: 065

REACTIONS (13)
  - Localised oedema [Unknown]
  - Therapy change [Unknown]
  - Oedema peripheral [Unknown]
  - Abdominal discomfort [Unknown]
  - Memory impairment [Unknown]
  - Dysphagia [Unknown]
  - Dry mouth [Unknown]
  - Disorientation [Unknown]
  - Coordination abnormal [Unknown]
  - Breath sounds abnormal [Unknown]
  - Tongue disorder [Unknown]
  - Drug ineffective [Unknown]
  - Suspected product quality issue [Unknown]

NARRATIVE: CASE EVENT DATE: 20230101
